FAERS Safety Report 17239636 (Version 1)
Quarter: 2020Q1

REPORT INFORMATION
  Report Type: Spontaneous
  Country: US (occurrence: US)
  Receive Date: 20200106
  Receipt Date: 20200106
  Transmission Date: 20200409
  Serious: No
  Sender: FDA-Public Use
  Company Number: US-EPIC PHARMA LLC-2019EPC00077

PATIENT
  Sex: Female

DRUGS (1)
  1. DOXYCYCLINE HYCLATE. [Suspect]
     Active Substance: DOXYCYCLINE HYCLATE
     Dosage: 100 MG, 2X/DAY

REACTIONS (5)
  - Odynophagia [Recovering/Resolving]
  - Foreign body in respiratory tract [Recovered/Resolved]
  - Oropharyngeal pain [Recovering/Resolving]
  - Oesophagitis [Unknown]
  - Chest pain [Unknown]

NARRATIVE: CASE EVENT DATE: 20190303
